FAERS Safety Report 7465642-8 (Version None)
Quarter: 2011Q2

REPORT INFORMATION
  Report Type: 
  Country: None (occurrence: None)
  Receive Date: 20110509
  Receipt Date: 20110503
  Transmission Date: 20111010
  Serious: Yes (Hospitalization)
  Sender: FDA-Public Use
  Company Number: A0889297A

PATIENT
  Age: 72 Year
  Sex: Male
  Weight: 102.3 kg

DRUGS (11)
  1. PRILOSEC [Concomitant]
  2. COUMADIN [Concomitant]
  3. REGULAR INSULIN [Concomitant]
  4. LANTUS [Concomitant]
  5. PROTONIX [Concomitant]
  6. ZOCOR [Concomitant]
  7. LASIX [Concomitant]
  8. ALBUTEROL [Concomitant]
  9. AVANDIA [Suspect]
     Indication: DIABETES MELLITUS
     Dosage: 8MG PER DAY
     Route: 048
     Dates: start: 20020101, end: 20090101
  10. COZAAR [Concomitant]
  11. CRESTOR [Concomitant]

REACTIONS (6)
  - CARDIAC FAILURE CONGESTIVE [None]
  - MYOCARDIAL INFARCTION [None]
  - VENTRICULAR TACHYCARDIA [None]
  - CEREBROVASCULAR ACCIDENT [None]
  - ATRIOVENTRICULAR BLOCK SECOND DEGREE [None]
  - ATRIAL FIBRILLATION [None]
